FAERS Safety Report 7974618-3 (Version None)
Quarter: 2011Q4

REPORT INFORMATION
  Report Type: 
  Country: None (occurrence: None)
  Receive Date: 20111213
  Receipt Date: 20111206
  Transmission Date: 20120403
  Serious: Yes (Death, Hospitalization)
  Sender: FDA-Public Use
  Company Number: US-ACTELION-A-US2011-45016

PATIENT

DRUGS (4)
  1. LASIX [Concomitant]
  2. TRACLEER [Suspect]
     Indication: PULMONARY ARTERIAL HYPERTENSION
     Dosage: UNK
     Route: 048
     Dates: start: 20091104
  3. COUMADIN [Concomitant]
  4. REVATIO [Concomitant]

REACTIONS (6)
  - MEDICAL DEVICE REMOVAL [None]
  - DEATH [None]
  - PNEUMONIA [None]
  - RESPIRATORY TRACT INFECTION [None]
  - WEIGHT DECREASED [None]
  - EATING DISORDER [None]
